FAERS Safety Report 5614710-1 (Version None)
Quarter: 2008Q1

REPORT INFORMATION
  Report Type: 
  Country: None (occurrence: None)
  Receive Date: 20080131
  Receipt Date: 20080118
  Transmission Date: 20080703
  Serious: Yes (Hospitalization)
  Sender: FDA-Public Use
  Company Number: 2008S1000021

PATIENT
  Age: 56 Year
  Sex: Male
  Weight: 69.99 kg

DRUGS (1)
  1. ACITRETIN [Suspect]
     Indication: RASH PAPULAR
     Dosage: 25 MG; QD; PO
     Route: 048
     Dates: start: 20070208, end: 20070727

REACTIONS (1)
  - TENDON CALCIFICATION [None]
